FAERS Safety Report 6634030-6 (Version None)
Quarter: 2010Q1

REPORT INFORMATION
  Report Type: 
  Country: None (occurrence: None)
  Receive Date: 20100310
  Receipt Date: 20100223
  Transmission Date: 20100710
  Serious: Yes (Life-Threatening, Hospitalization)
  Sender: FDA-Public Use
  Company Number: 2010AL001242

PATIENT
  Age: 69 Year
  Sex: Female

DRUGS (13)
  1. EPIRUBICIN HYDROCHLORIDE [Suspect]
     Indication: BREAST CANCER
     Dosage: 100 MG;UNK;UNK
     Dates: start: 20090918
  2. FLUOROURACIL [Concomitant]
  3. CYCLOPHOSPHAMIDE [Concomitant]
  4. LETROZOLE [Concomitant]
  5. PARSPERTIN [Concomitant]
  6. KALIUM ^VERLA^ [Concomitant]
  7. AMPHOTERICIN B [Concomitant]
  8. CLONT [Concomitant]
  9. DIPYRONE TAB [Concomitant]
  10. ZOPICLONE [Concomitant]
  11. CIPRO [Concomitant]
  12. TAZOBAC [Concomitant]
  13. ENOXAPARIN SODIUM [Concomitant]

REACTIONS (12)
  - CLOSTRIDIAL INFECTION [None]
  - DIARRHOEA [None]
  - GENERAL PHYSICAL CONDITION ABNORMAL [None]
  - LEUKOPENIA [None]
  - NAUSEA [None]
  - NEUTROPENIA [None]
  - PAIN [None]
  - PULMONARY EMBOLISM [None]
  - RESPIRATORY TRACT INFECTION [None]
  - SYNCOPE [None]
  - VENOUS THROMBOSIS [None]
  - VERTIGO [None]
